FAERS Safety Report 5051468-1 (Version None)
Quarter: 2006Q3

REPORT INFORMATION
  Report Type: 
  Country: None (occurrence: None)
  Receive Date: 20060714
  Receipt Date: 20060707
  Transmission Date: 20061208
  Serious: Yes (Life-Threatening, Hospitalization)
  Sender: FDA-Public Use
  Company Number: 2006GB01169

PATIENT
  Age: 84 Year
  Sex: Male

DRUGS (7)
  1. BICALUTAMIDE [Suspect]
     Indication: PROSTATE CANCER
     Route: 048
     Dates: start: 20030101, end: 20060527
  2. CYPROTERONE ACETATE [Suspect]
     Indication: PROSTATE CANCER
     Route: 048
     Dates: start: 20030101, end: 20060527
  3. BISOPROLOL FUMARATE [Concomitant]
  4. FERROUS SULFATE TAB [Concomitant]
  5. FUROSEMIDE [Concomitant]
  6. OLMESARTAN MEDOXOMIL [Concomitant]
  7. SPIRONOLACTONE [Concomitant]

REACTIONS (3)
  - DYSPNOEA [None]
  - EXERCISE TOLERANCE DECREASED [None]
  - LEFT VENTRICULAR FAILURE [None]
